FAERS Safety Report 5451048-X (Version None)
Quarter: 2007Q3

REPORT INFORMATION
  Report Type: 
  Country: None (occurrence: None)
  Receive Date: 20070801
  Receipt Date: 20070322
  Transmission Date: 20080115
  Serious: Yes (Life-Threatening)
  Sender: FDA-Public Use
  Company Number: US-JNJFOC-20070305702

PATIENT
  Age: 5 Year
  Sex: Male

DRUGS (4)
  1. CHILDREN'S MOTRIN [Suspect]
     Indication: DRUG USE FOR UNKNOWN INDICATION
     Dosage: 1 DOSE (S)
     Dates: start: 20070127
  2. CHILDREN'S MOTRIN [Suspect]
     Indication: DRUG USE FOR UNKNOWN INDICATION
     Dosage: 1 DOSE (S)
     Dates: start: 20070228
  3. HAVRIX [Suspect]
     Indication: PROPHYLAXIS
     Dosage: 720 ELISA UNIT (LEFT GLUTEAL)
     Dates: start: 20070127
  4. VARIVAX (VARICELLA VIRUS VACCINE, LIVE) [Concomitant]

REACTIONS (2)
  - ANAPHYLACTIC REACTION [None]
  - HYPERSENSITIVITY [None]
